FAERS Safety Report 10929840 (Version 1)
Quarter: 2015Q1

REPORT INFORMATION
  Report Type: Spontaneous
  Country: US (occurrence: US)
  Receive Date: 20150319
  Receipt Date: 20150319
  Transmission Date: 20150721
  Serious: Yes (Hospitalization)
  Sender: FDA-Public Use
  Company Number: US-ASTRAZENECA-2015SE13450

PATIENT
  Age: 890 Month
  Sex: Male
  Weight: 140.6 kg

DRUGS (20)
  1. CARVEDILOL. [Concomitant]
     Active Substance: CARVEDILOL
     Indication: CARDIAC DISORDER
  2. FENOFIBRATE. [Concomitant]
     Active Substance: FENOFIBRATE
     Indication: BLOOD TRIGLYCERIDES ABNORMAL
  3. MIRALAX [Concomitant]
     Active Substance: POLYETHYLENE GLYCOL 3350
     Indication: CONSTIPATION
     Dosage: FOUR TIMES A DAY
  4. HUMALIN R [Concomitant]
     Indication: DIABETES MELLITUS
  5. LEXIPRO [Concomitant]
     Indication: DEPRESSION
  6. ASPIRIN. [Concomitant]
     Active Substance: ASPIRIN
  7. HYDROZILINE 2 [Concomitant]
     Indication: CARDIAC DISORDER
  8. SIMVASTATIN. [Concomitant]
     Active Substance: SIMVASTATIN
     Indication: BLOOD CHOLESTEROL ABNORMAL
  9. FAMOTIDINE. [Concomitant]
     Active Substance: FAMOTIDINE
     Indication: GASTROOESOPHAGEAL REFLUX DISEASE
  10. FURISOMIDE [Concomitant]
  11. LAVASA FISH OIL [Concomitant]
     Indication: CARDIAC DISORDER
  12. LEVAMIR [Concomitant]
     Indication: DIABETES MELLITUS
  13. ALIPURINOL [Concomitant]
     Indication: GOUT
  14. ZEMPLAR [Concomitant]
     Active Substance: PARICALCITOL
     Indication: PARATHYROID DISORDER
  15. AMLODIPINE [Concomitant]
     Active Substance: AMLODIPINE BESYLATE
     Indication: BLOOD PRESSURE ABNORMAL
  16. VITAMIN D [Concomitant]
     Active Substance: CHOLECALCIFEROL
  17. PLAVIX [Concomitant]
     Active Substance: CLOPIDOGREL BISULFATE
     Indication: CARDIAC DISORDER
  18. NITROSTAT [Concomitant]
     Active Substance: NITROGLYCERIN
     Indication: CARDIAC DISORDER
     Dosage: AS REQUIRED
  19. BYDUREON [Suspect]
     Active Substance: EXENATIDE
     Indication: DIABETES MELLITUS
     Route: 058
     Dates: start: 2013
  20. IMDUR [Concomitant]
     Active Substance: ISOSORBIDE MONONITRATE

REACTIONS (5)
  - Chest pain [Unknown]
  - Gastrooesophageal reflux disease [Not Recovered/Not Resolved]
  - Dyspnoea [Unknown]
  - Constipation [Unknown]
  - Blood glucose increased [Unknown]

NARRATIVE: CASE EVENT DATE: 201311
